FAERS Safety Report 5064456-6 (Version None)
Quarter: 2006Q3

REPORT INFORMATION
  Report Type: 
  Country: None (occurrence: None)
  Receive Date: 20060728
  Receipt Date: 20060720
  Transmission Date: 20061208
  Serious: Yes (Other)
  Sender: FDA-Public Use
  Company Number: DE-JNJFOC-20060700177

PATIENT
  Sex: Female
  Weight: 70 kg

DRUGS (5)
  1. TOPAMAX [Suspect]
     Indication: MIGRAINE
     Route: 048
  2. MEBEMERCK [Concomitant]
     Route: 048
  3. IMIGRAN [Concomitant]
     Route: 048
  4. PASPERTIN [Concomitant]
     Route: 065
  5. VITAMIN B-12 [Concomitant]
     Route: 065

REACTIONS (4)
  - ABDOMINAL PAIN [None]
  - CHEST DISCOMFORT [None]
  - PETIT MAL EPILEPSY [None]
  - WEIGHT DECREASED [None]
